FAERS Safety Report 16879784 (Version 3)
Quarter: 2021Q3

REPORT INFORMATION
  Report Type: Other
  Country: US (occurrence: US)
  Receive Date: 20191003
  Receipt Date: 20210924
  Transmission Date: 20211014
  Serious: Yes (Hospitalization, Other)
  Sender: FDA-Public Use
  Company Number: US-ROCHE-2422498

PATIENT
  Age: 61 Year
  Sex: Female

DRUGS (18)
  1. VALIUM [Suspect]
     Active Substance: DIAZEPAM
     Indication: MUSCLE SPASMS
     Route: 048
  2. BRIMONIDINE [Concomitant]
     Active Substance: BRIMONIDINE TARTRATE
     Dosage: 1 DROP IN BOTH EYES EVERY 8 HOURS
  3. NEURONTIN [Concomitant]
     Active Substance: GABAPENTIN
     Route: 048
  4. BEN GAY [Concomitant]
     Route: 061
  5. HUMALOG [Concomitant]
     Active Substance: INSULIN LISPRO
     Route: 058
  6. RESTASIS [Concomitant]
     Active Substance: CYCLOSPORINE
     Dosage: 1 DROP INTO BOTH EYES TWICE IN A DAY
  7. TUMS [Concomitant]
     Active Substance: CALCIUM CARBONATE
  8. GLUCOTROL [Concomitant]
     Active Substance: GLIPIZIDE
     Dosage: 5 MG BY MOUTH DAILY
  9. FOLVITE [Concomitant]
     Active Substance: FOLIC ACID
     Route: 048
  10. TYLENOL [Concomitant]
     Active Substance: ACETAMINOPHEN
     Indication: PAIN
  11. ACETAMINOPHEN. [Concomitant]
     Active Substance: ACETAMINOPHEN
  12. SYNTHROID [Concomitant]
     Active Substance: LEVOTHYROXINE SODIUM
  13. MAGONATE [Concomitant]
     Active Substance: MAGNESIUM CARBONATE
  14. OCREVUS [Suspect]
     Active Substance: OCRELIZUMAB
     Indication: RELAPSING-REMITTING MULTIPLE SCLEROSIS
     Dosage: DATE OF TREATMENT: 18/MAR/2021, 23?AUG?2019, 25?FEB?2019
     Route: 042
     Dates: start: 20190225
  15. ALPHAGAN P [Concomitant]
     Active Substance: BRIMONIDINE TARTRATE
  16. CYMBALTA [Concomitant]
     Active Substance: DULOXETINE HYDROCHLORIDE
     Dosage: 60 MG BY MOUTH TWICE IN A DAY
  17. ROMYCIN [ERYTHROMYCIN] [Concomitant]
  18. TRAVATAN Z [Concomitant]
     Active Substance: TRAVOPROST
     Route: 047

REACTIONS (13)
  - Dehydration [Unknown]
  - Dysarthria [Unknown]
  - Pain [Unknown]
  - Blood pressure fluctuation [Recovered/Resolved]
  - Hypotension [Recovered/Resolved]
  - Fall [Unknown]
  - Weight increased [Unknown]
  - Cerebrovascular accident [Unknown]
  - Urinary tract infection [Not Recovered/Not Resolved]
  - Wrist fracture [Unknown]
  - Hypoaesthesia [Unknown]
  - Cognitive disorder [Not Recovered/Not Resolved]
  - Rib fracture [Unknown]

NARRATIVE: CASE EVENT DATE: 20190914
